FAERS Safety Report 26087168 (Version 1)
Quarter: 2025Q4

REPORT INFORMATION
  Report Type: Spontaneous
  Country: GB (occurrence: GB)
  Receive Date: 20251125
  Receipt Date: 20251125
  Transmission Date: 20260118
  Serious: Yes (Other)
  Sender: MYLAN
  Company Number: GB-MYLANLABS-2025M1100128

PATIENT
  Age: 36 Year
  Sex: Female

DRUGS (20)
  1. COLCHICINE [Suspect]
     Active Substance: COLCHICINE
     Indication: Aphthous ulcer
     Dosage: UNK
  2. COLCHICINE [Suspect]
     Active Substance: COLCHICINE
     Dosage: UNK
     Route: 065
  3. COLCHICINE [Suspect]
     Active Substance: COLCHICINE
     Dosage: UNK
     Route: 065
  4. COLCHICINE [Suspect]
     Active Substance: COLCHICINE
     Dosage: UNK
  5. MYCOPHENOLATE MOFETIL [Suspect]
     Active Substance: MYCOPHENOLATE MOFETIL
     Indication: Aphthous ulcer
     Dosage: UNK
  6. MYCOPHENOLATE MOFETIL [Suspect]
     Active Substance: MYCOPHENOLATE MOFETIL
     Dosage: UNK
     Route: 065
  7. MYCOPHENOLATE MOFETIL [Suspect]
     Active Substance: MYCOPHENOLATE MOFETIL
     Dosage: UNK
     Route: 065
  8. MYCOPHENOLATE MOFETIL [Suspect]
     Active Substance: MYCOPHENOLATE MOFETIL
     Dosage: UNK
  9. AZATHIOPRINE [Suspect]
     Active Substance: AZATHIOPRINE
     Indication: Aphthous ulcer
     Dosage: UNK
  10. AZATHIOPRINE [Suspect]
     Active Substance: AZATHIOPRINE
     Dosage: UNK
     Route: 065
  11. AZATHIOPRINE [Suspect]
     Active Substance: AZATHIOPRINE
     Dosage: UNK
     Route: 065
  12. AZATHIOPRINE [Suspect]
     Active Substance: AZATHIOPRINE
     Dosage: UNK
  13. PENTOXIFYLLINE [Suspect]
     Active Substance: PENTOXIFYLLINE
     Indication: Aphthous ulcer
     Dosage: UNK
  14. PENTOXIFYLLINE [Suspect]
     Active Substance: PENTOXIFYLLINE
     Dosage: UNK
     Route: 065
  15. PENTOXIFYLLINE [Suspect]
     Active Substance: PENTOXIFYLLINE
     Dosage: UNK
     Route: 065
  16. PENTOXIFYLLINE [Suspect]
     Active Substance: PENTOXIFYLLINE
     Dosage: UNK
  17. DAPSONE [Suspect]
     Active Substance: DAPSONE
     Indication: Aphthous ulcer
     Dosage: UNK
  18. DAPSONE [Suspect]
     Active Substance: DAPSONE
     Dosage: UNK
     Route: 065
  19. DAPSONE [Suspect]
     Active Substance: DAPSONE
     Dosage: UNK
     Route: 065
  20. DAPSONE [Suspect]
     Active Substance: DAPSONE
     Dosage: UNK

REACTIONS (2)
  - Therapy non-responder [Unknown]
  - Off label use [Unknown]
